FAERS Safety Report 6318342-1 (Version None)
Quarter: 2009Q3

REPORT INFORMATION
  Report Type: 
  Country: None (occurrence: None)
  Receive Date: 20090821
  Receipt Date: 20090817
  Transmission Date: 20100115
  Serious: Yes (Death, Hospitalization)
  Sender: FDA-Public Use
  Company Number: CM-MERCK-0908USA02821

PATIENT
  Age: 35 Year
  Sex: Male

DRUGS (1)
  1. STROMECTOL [Suspect]
     Route: 048
     Dates: start: 20090711, end: 20090711

REACTIONS (7)
  - ASTHENIA [None]
  - CONJUNCTIVAL HAEMORRHAGE [None]
  - DECREASED APPETITE [None]
  - DEPRESSED LEVEL OF CONSCIOUSNESS [None]
  - ENCEPHALOPATHY [None]
  - PYREXIA [None]
  - URINARY INCONTINENCE [None]
